FAERS Safety Report 22037651 (Version 2)
Quarter: 2024Q1

REPORT INFORMATION
  Report Type: Spontaneous
  Country: US (occurrence: US)
  Receive Date: 20230227
  Receipt Date: 20240110
  Transmission Date: 20240410
  Serious: No
  Sender: FDA-Public Use
  Company Number: US-BIOGEN-2022BI01176685

PATIENT
  Sex: Female

DRUGS (13)
  1. TECFIDERA [Suspect]
     Active Substance: DIMETHYL FUMARATE
     Indication: Multiple sclerosis
     Dosage: TAKE 1 TABLET BY MOUTH 2 TIMES PER DAY
     Route: 050
  2. CLARITIN [Concomitant]
     Active Substance: LORATADINE
     Route: 050
  3. TRIAMCINOLON [Concomitant]
     Route: 050
  4. VALTREX [Concomitant]
     Active Substance: VALACYCLOVIR HYDROCHLORIDE
     Route: 050
  5. BRIVIACT [Concomitant]
     Active Substance: BRIVARACETAM
     Route: 050
  6. VIMPAT [Concomitant]
     Active Substance: LACOSAMIDE
     Route: 050
  7. VITAMIN D [Concomitant]
     Active Substance: VITAMIN D NOS
     Route: 050
  8. TOPIRAMATE [Concomitant]
     Active Substance: TOPIRAMATE
     Route: 050
  9. TIZANIDINE [Concomitant]
     Active Substance: TIZANIDINE
     Route: 050
  10. ASPIRIN [Concomitant]
     Active Substance: ASPIRIN
     Route: 050
  11. ALBUTEROL [Concomitant]
     Active Substance: ALBUTEROL
     Route: 050
  12. FLONASE [Concomitant]
     Active Substance: FLUTICASONE PROPIONATE
     Route: 050
  13. FLOVENT [Concomitant]
     Active Substance: FLUTICASONE PROPIONATE
     Route: 050

REACTIONS (8)
  - Headache [Not Recovered/Not Resolved]
  - Memory impairment [Not Recovered/Not Resolved]
  - Illness [Unknown]
  - Flushing [Not Recovered/Not Resolved]
  - Nausea [Not Recovered/Not Resolved]
  - Diarrhoea [Not Recovered/Not Resolved]
  - Abdominal pain upper [Not Recovered/Not Resolved]
  - Hypersensitivity [Unknown]
